FAERS Safety Report 24410205 (Version 1)
Quarter: 2024Q4

REPORT INFORMATION
  Report Type: Spontaneous
  Country: US (occurrence: US)
  Receive Date: 20241008
  Receipt Date: 20241008
  Transmission Date: 20250115
  Serious: Yes (Other)
  Sender: ROCHE
  Company Number: US-ROCHE-10000096647

PATIENT
  Age: 80 Year
  Sex: Female

DRUGS (1)
  1. ALECENSA [Suspect]
     Active Substance: ALECTINIB HYDROCHLORIDE
     Indication: Non-small cell lung cancer
     Dosage: TAKING THREE 150MG CAPSULES TWICE DAILY
     Route: 048
     Dates: start: 2017

REACTIONS (1)
  - Haemolytic anaemia [Unknown]
